FAERS Safety Report 10739060 (Version 3)
Quarter: 2015Q2

REPORT INFORMATION
  Report Type: Report from Study
  Country: US (occurrence: US)
  Receive Date: 20150126
  Receipt Date: 20150401
  Transmission Date: 20150821
  Serious: Yes (Other)
  Sender: FDA-Public Use
  Company Number: US-CELGENEUS-163-21880-12040632

PATIENT
  Age: 68 Year
  Sex: Male
  Weight: 75.82 kg

DRUGS (6)
  1. LIDOCAINE WITH EPINEPHERINE [Concomitant]
     Indication: PRODUCT USED FOR UNKNOWN INDICATION
     Route: 058
     Dates: start: 20111208, end: 20111208
  2. OMEPRAZOLE. [Concomitant]
     Active Substance: OMEPRAZOLE
     Indication: PRODUCT USED FOR UNKNOWN INDICATION
     Route: 048
     Dates: start: 2006
  3. MARCAINE WITH EPINEPHERINE [Concomitant]
     Indication: PRODUCT USED FOR UNKNOWN INDICATION
     Route: 058
     Dates: start: 20111208, end: 20111208
  4. MARCAINE WITH EPINEPHERINE [Concomitant]
     Route: 058
     Dates: start: 20120321, end: 20120321
  5. LIDOCAINE WITH EPINEPHERINE [Concomitant]
     Route: 058
     Dates: start: 20120321, end: 20120321
  6. REVLIMID [Suspect]
     Active Substance: LENALIDOMIDE
     Indication: CHRONIC LYMPHOCYTIC LEUKAEMIA
     Dosage: 1.25 MILLIGRAM
     Route: 048
     Dates: start: 20110913, end: 20130716

REACTIONS (4)
  - Basal cell carcinoma [Recovered/Resolved]
  - Squamous cell carcinoma of skin [Unknown]
  - Squamous cell carcinoma of skin [Recovered/Resolved]
  - Basal cell carcinoma [Unknown]

NARRATIVE: CASE EVENT DATE: 20111027
